FAERS Safety Report 5042270-5 (Version None)
Quarter: 2006Q2

REPORT INFORMATION
  Report Type: 
  Country: None (occurrence: None)
  Receive Date: 20060627
  Receipt Date: 20060613
  Transmission Date: 20061013
  Serious: Yes (Hospitalization)
  Sender: FDA-Public Use
  Company Number: 2006076712

PATIENT
  Age: 66 Year
  Sex: Male

DRUGS (1)
  1. CELEBREX [Suspect]
     Indication: ARTHRITIS
     Dosage: 200 MG (2 IN 1 D);
     Dates: start: 20010701, end: 20040810

REACTIONS (2)
  - ASTHENIA [None]
  - ATRIAL FIBRILLATION [None]
